FAERS Safety Report 22252215 (Version 1)
Quarter: 2023Q2

REPORT INFORMATION
  Report Type: Report from Study
  Country: US (occurrence: None)
  Receive Date: 20230426
  Receipt Date: 20230426
  Transmission Date: 20230721
  Serious: Yes (Death)
  Sender: FDA-Public Use
  Company Number: 2023A094532

PATIENT
  Sex: Male

DRUGS (2)
  1. CALQUENCE [Suspect]
     Active Substance: ACALABRUTINIB
     Indication: B-cell small lymphocytic lymphoma
     Route: 048
     Dates: start: 20221208
  2. CALQUENCE [Suspect]
     Active Substance: ACALABRUTINIB
     Indication: Benign lymph node neoplasm
     Route: 048
     Dates: start: 20221208

REACTIONS (1)
  - Death [Fatal]
